FAERS Safety Report 7369205-4 (Version None)
Quarter: 2011Q1

REPORT INFORMATION
  Report Type: 
  Country: None (occurrence: None)
  Receive Date: 20110323
  Receipt Date: 20110316
  Transmission Date: 20110831
  Serious: Yes (Hospitalization)
  Sender: FDA-Public Use
  Company Number: DE-ROCHE-765254

PATIENT
  Sex: Female

DRUGS (5)
  1. RIVOTRIL [Suspect]
     Route: 048
     Dates: start: 19910101, end: 20110201
  2. RIVOTRIL [Suspect]
     Dosage: DOSAGE INCREASED
     Route: 048
     Dates: start: 20110201
  3. EFEROX [Concomitant]
     Indication: THYROID DISORDER
  4. EFEROX [Concomitant]
  5. NOVALGIN [Concomitant]
     Dosage: TAKEN IRREGULARLY

REACTIONS (1)
  - SYNCOPE [None]
